FAERS Safety Report 19233761 (Version 1)
Quarter: 2021Q2

REPORT INFORMATION
  Report Type: Report from Study
  Country: US (occurrence: US)
  Receive Date: 20210507
  Receipt Date: 20210507
  Transmission Date: 20210717
  Serious: Yes (Life-Threatening, Hospitalization)
  Sender: FDA-Public Use
  Company Number: US-EXELIXIS-XL18421040136

PATIENT
  Age: 82 Year
  Sex: Female
  Weight: 55.2 kg

DRUGS (2)
  1. XL184 [Suspect]
     Active Substance: CABOZANTINIB
     Indication: TRANSITIONAL CELL CARCINOMA
     Dosage: 40 MG, QD
     Route: 048
     Dates: start: 20210317
  2. PEMBROLIZUMAB. [Suspect]
     Active Substance: PEMBROLIZUMAB
     Indication: TRANSITIONAL CELL CARCINOMA
     Dosage: 200 MG, Q3WEEKS
     Route: 042
     Dates: start: 20210317

REACTIONS (3)
  - Immune-mediated hepatitis [Unknown]
  - Cardiac failure [Unknown]
  - Acute kidney injury [Unknown]

NARRATIVE: CASE EVENT DATE: 20210420
